FAERS Safety Report 25049007 (Version 2)
Quarter: 2025Q2

REPORT INFORMATION
  Report Type: Spontaneous
  Country: DE (occurrence: DE)
  Receive Date: 20250307
  Receipt Date: 20250409
  Transmission Date: 20250717
  Serious: Yes (Other)
  Sender: BIOGEN
  Company Number: DE-BIOGEN-2025BI01302740

PATIENT
  Age: 40 Year
  Sex: Male

DRUGS (4)
  1. VUMERITY [Suspect]
     Active Substance: DIROXIMEL FUMARATE
     Indication: Multiple sclerosis
     Dosage: AFTER A WEEK
     Route: 050
     Dates: start: 20250130
  2. VUMERITY [Suspect]
     Active Substance: DIROXIMEL FUMARATE
     Dosage: 2 CAPSULE (231 MG) - 462 MG AFTER 1 WEEK
     Route: 050
     Dates: end: 20250227
  3. L-Thyrox 100 [Concomitant]
     Indication: Product used for unknown indication
     Route: 050
  4. INSULIN LISPRO [Concomitant]
     Active Substance: INSULIN LISPRO
     Indication: Product used for unknown indication
     Route: 050

REACTIONS (1)
  - Hyperglycaemia [Recovered/Resolved]

NARRATIVE: CASE EVENT DATE: 20250130
